FAERS Safety Report 5896371-X (Version None)
Quarter: 2008Q3

REPORT INFORMATION
  Report Type: 
  Country: None (occurrence: None)
  Receive Date: 20080924
  Receipt Date: 20071009
  Transmission Date: 20090109
  Serious: Yes (Other)
  Sender: FDA-Public Use
  Company Number: US-ASTRAZENECA-2007UW23513

PATIENT
  Age: 54 Year
  Sex: Male

DRUGS (5)
  1. SEROQUEL [Suspect]
     Route: 048
     Dates: start: 20070801
  2. GEODON [Concomitant]
     Route: 048
  3. ZYPREXA [Concomitant]
     Route: 048
  4. KLONOPIN [Concomitant]
     Dosage: .5 MG HS PRN
     Route: 048
  5. EFFEXOR [Concomitant]
     Route: 048

REACTIONS (3)
  - CHILLS [None]
  - NEUROLEPTIC MALIGNANT SYNDROME [None]
  - PYREXIA [None]
